FAERS Safety Report 10694521 (Version 1)
Quarter: 2015Q1

REPORT INFORMATION
  Report Type: Spontaneous
  Country: US (occurrence: US)
  Receive Date: 20150107
  Receipt Date: 20150107
  Transmission Date: 20150721
  Serious: No
  Sender: FDA-Public Use
  Company Number: US-BIOGENIDEC-2015BI000857

PATIENT
  Sex: Female

DRUGS (2)
  1. AVONEX [Suspect]
     Active Substance: INTERFERON BETA-1A
     Indication: MULTIPLE SCLEROSIS
     Route: 030
  2. AVONEX [Suspect]
     Active Substance: INTERFERON BETA-1A
     Indication: MULTIPLE SCLEROSIS
     Route: 030
     Dates: start: 20141210

REACTIONS (8)
  - Oropharyngeal pain [Unknown]
  - Pain in extremity [Unknown]
  - Dysphonia [Unknown]
  - Pain [Unknown]
  - Influenza like illness [Unknown]
  - Pharyngeal oedema [Unknown]
  - Multiple sclerosis relapse [Unknown]
  - Temperature intolerance [Unknown]
